FAERS Safety Report 9510605 (Version 1)
Quarter: 2013Q3

REPORT INFORMATION
  Report Type: Spontaneous
  Country: IN (occurrence: IN)
  Receive Date: 20130909
  Receipt Date: 20130909
  Transmission Date: 20140515
  Serious: Yes (Hospitalization, Disabling, Other)
  Sender: FDA-Public Use
  Company Number: IN-WATSON-2013-16203

PATIENT
  Age: 15 Year
  Sex: Male

DRUGS (4)
  1. ISOFLURANE (UNKNOWN) [Suspect]
     Indication: GENERAL ANAESTHESIA
     Dosage: UNKNOWN
     Route: 065
  2. FENTANYL (UNKNOWN) [Suspect]
     Indication: GENERAL ANAESTHESIA
     Dosage: UNKNOWN
     Route: 065
  3. ATRACURIUM [Suspect]
     Indication: GENERAL ANAESTHESIA
     Dosage: UNKNOWN
     Route: 065
  4. THIOPENTAL SODIUM [Suspect]
     Indication: GENERAL ANAESTHESIA
     Dosage: UNKNOWN
     Route: 065

REACTIONS (2)
  - Blindness cortical [Recovering/Resolving]
  - Procedural hypotension [Recovered/Resolved]
